FAERS Safety Report 9631395 (Version 1)
Quarter: 2013Q4

REPORT INFORMATION
  Report Type: Spontaneous
  Country: US (occurrence: None)
  Receive Date: 20131017
  Receipt Date: 20131017
  Transmission Date: 20140711
  Serious: Yes (Other)
  Sender: FDA-Public Use
  Company Number: None

PATIENT
  Age: 37 Year
  Sex: Male
  Weight: 204 kg

DRUGS (4)
  1. TRAMADOL [Suspect]
     Indication: PAIN
     Route: 048
     Dates: start: 20130901, end: 20130902
  2. CYMBALTA [Concomitant]
  3. GABAPENTIN [Concomitant]
  4. DIAZEPAM [Concomitant]

REACTIONS (6)
  - Convulsion [None]
  - Blood pressure increased [None]
  - Heart rate increased [None]
  - Blood glucose increased [None]
  - Drug interaction [None]
  - Withdrawal syndrome [None]
